FAERS Safety Report 6551748-4 (Version None)
Quarter: 2010Q1

REPORT INFORMATION
  Report Type: 
  Country: None (occurrence: None)
  Receive Date: 20100126
  Receipt Date: 20100118
  Transmission Date: 20100710
  Serious: Yes (Life-Threatening, Hospitalization)
  Sender: FDA-Public Use
  Company Number: CA-ROCHE-677272

PATIENT
  Sex: Female
  Weight: 67 kg

DRUGS (1)
  1. BEVACIZUMAB [Suspect]
     Indication: GLIOBLASTOMA MULTIFORME
     Dosage: FORM: INFUSION.
     Route: 042
     Dates: start: 20091214, end: 20091229

REACTIONS (3)
  - CONVULSION [None]
  - HEADACHE [None]
  - MALIGNANT NEOPLASM PROGRESSION [None]
